FAERS Safety Report 4832045-1 (Version None)
Quarter: 2005Q4

REPORT INFORMATION
  Report Type: 
  Country: None (occurrence: None)
  Receive Date: 20051116
  Receipt Date: 20051031
  Transmission Date: 20060501
  Serious: Yes (Hospitalization)
  Sender: FDA-Public Use
  Company Number: 200510IM000689

PATIENT
  Age: 51 Year
  Sex: Female
  Weight: 81.6475 kg

DRUGS (8)
  1. INFERGEN [Suspect]
     Indication: HEPATITIS C
     Dosage: 9 UG, TIW, SUBCUTANEOUS
     Route: 058
     Dates: start: 20050520
  2. RIBAVIRIN [Concomitant]
  3. DYAZIDE [Concomitant]
  4. IMURAN [Concomitant]
  5. METHADOSE [Concomitant]
  6. AMITRIPTYLINE HCL [Concomitant]
  7. DIAZEPAM [Concomitant]
  8. ZOLOFT [Concomitant]

REACTIONS (7)
  - AMMONIA INCREASED [None]
  - ASTHENIA [None]
  - CONFUSIONAL STATE [None]
  - CONSTIPATION [None]
  - FATIGUE [None]
  - HYPERSOMNIA [None]
  - LABORATORY TEST ABNORMAL [None]
